FAERS Safety Report 5503514-6 (Version None)
Quarter: 2007Q4

REPORT INFORMATION
  Report Type: 
  Country: None (occurrence: None)
  Receive Date: 20071031
  Receipt Date: 20071024
  Transmission Date: 20080405
  Serious: Yes (Life-Threatening)
  Sender: FDA-Public Use
  Company Number: IT-MERCK-0710ITA00050

PATIENT
  Age: 68 Year
  Sex: Male

DRUGS (5)
  1. VYTORIN [Suspect]
     Indication: DYSLIPIDAEMIA
     Route: 048
     Dates: start: 20070613, end: 20070717
  2. RABEPRAZOLE SODIUM [Concomitant]
     Route: 065
  3. TICLOPIDINE HYDROCHLORIDE [Concomitant]
     Route: 065
  4. METOPROLOL [Concomitant]
     Route: 065
  5. AMIODARONE [Concomitant]
     Route: 065

REACTIONS (5)
  - CHROMATURIA [None]
  - MYALGIA [None]
  - MYOGLOBIN BLOOD INCREASED [None]
  - OLIGURIA [None]
  - RHABDOMYOLYSIS [None]
